FAERS Safety Report 8061791-4 (Version None)
Quarter: 2012Q1

REPORT INFORMATION
  Report Type: 
  Country: None (occurrence: None)
  Receive Date: 20120123
  Receipt Date: 20120117
  Transmission Date: 20120608
  Serious: Yes (Other)
  Sender: FDA-Public Use
  Company Number: GB-SP-2011-12453

PATIENT
  Sex: Male

DRUGS (1)
  1. IMMUCYST [Suspect]
     Indication: PRODUCT USED FOR UNKNOWN INDICATION
     Dosage: 81MG DOSES 1-4 / 40.5MG DOSES 5+6
     Route: 043
     Dates: start: 20111019, end: 20111228

REACTIONS (3)
  - THROMBOPHLEBITIS [None]
  - NAUSEA [None]
  - OFF LABEL USE [None]
